FAERS Safety Report 5017438-4 (Version None)
Quarter: 2006Q2

REPORT INFORMATION
  Report Type: 
  Country: None (occurrence: None)
  Receive Date: 20060525
  Receipt Date: 20060516
  Transmission Date: 20061013
  Serious: Yes (Other)
  Sender: FDA-Public Use
  Company Number: 200612084BCC

PATIENT
  Age: 44 Year
  Sex: Female

DRUGS (2)
  1. ACETYLSALICYLIC ACID SRT [Suspect]
     Indication: PAIN
     Dosage: PRN, ORAL
     Route: 048
     Dates: start: 19760101
  2. ALKA-SELTZER PLUS [Suspect]
     Indication: NASOPHARYNGITIS
     Dosage: PRN, ORAL
     Route: 048
     Dates: start: 19760101

REACTIONS (2)
  - HYPERTENSION [None]
  - SYSTEMIC LUPUS ERYTHEMATOSUS [None]
